FAERS Safety Report 14061915 (Version 4)
Quarter: 2017Q4

REPORT INFORMATION
  Report Type: Spontaneous
  Country: US (occurrence: US)
  Receive Date: 20171009
  Receipt Date: 20171127
  Transmission Date: 20180321
  Serious: Yes (Other)
  Sender: FDA-Public Use
  Company Number: PHEH2017US031697

PATIENT
  Sex: Female

DRUGS (2)
  1. KISQALI [Suspect]
     Active Substance: RIBOCICLIB
     Dosage: 2 UNK, UNK
     Route: 048
  2. KISQALI [Suspect]
     Active Substance: RIBOCICLIB
     Indication: PRODUCT USED FOR UNKNOWN INDICATION
     Route: 048

REACTIONS (5)
  - Peripheral swelling [Unknown]
  - White blood cell count decreased [Unknown]
  - Urethral disorder [Unknown]
  - Fatigue [Unknown]
  - Discomfort [Recovering/Resolving]
